FAERS Safety Report 15703574 (Version 2)
Quarter: 2018Q4

REPORT INFORMATION
  Report Type: Spontaneous
  Country: CA (occurrence: CA)
  Receive Date: 20181210
  Receipt Date: 20181228
  Transmission Date: 20190205
  Serious: Yes (Other)
  Sender: FDA-Public Use
  Company Number: CA-ROCHE-2223996

PATIENT
  Age: 75 Year
  Sex: Female
  Weight: 77.3 kg

DRUGS (14)
  1. TRANDOLAPRIL. [Concomitant]
     Active Substance: TRANDOLAPRIL
  2. MS CONTIN [Concomitant]
     Active Substance: MORPHINE SULFATE
  3. OMEPRAZOLE. [Concomitant]
     Active Substance: OMEPRAZOLE
  4. CITALOPRAM [Concomitant]
     Active Substance: CITALOPRAM HYDROBROMIDE
  5. ELAVIL (AMITRIPTYLINE) [Concomitant]
  6. CODEINE [Concomitant]
     Active Substance: CODEINE
  7. VALIUM [Suspect]
     Active Substance: DIAZEPAM
     Indication: MUSCLE SPASMS
     Route: 065
     Dates: start: 2008
  8. INSULIN [Concomitant]
     Active Substance: INSULIN NOS
     Route: 065
  9. ALENDRONATE [Concomitant]
     Active Substance: ALENDRONATE SODIUM
  10. VITAMIN D3 [Concomitant]
     Active Substance: CHOLECALCIFEROL
  11. INCRUSE ELLIPTA [Concomitant]
     Active Substance: UMECLIDINIUM BROMIDE
  12. ROSUVASTATIN. [Concomitant]
     Active Substance: ROSUVASTATIN
  13. OXYGEN. [Concomitant]
     Active Substance: OXYGEN
     Dosage: FOR 1 YEAR, 3-3.5 LPM
     Route: 065
  14. TYLENOL [Concomitant]
     Active Substance: ACETAMINOPHEN

REACTIONS (9)
  - Blood immunoglobulin G decreased [Unknown]
  - Chronic obstructive pulmonary disease [Unknown]
  - Blood potassium increased [Unknown]
  - Productive cough [Unknown]
  - Dyspnoea exertional [Unknown]
  - Oxygen saturation decreased [Unknown]
  - Renal impairment [Unknown]
  - Hypoxia [Unknown]
  - Idiopathic pulmonary fibrosis [Unknown]

NARRATIVE: CASE EVENT DATE: 20180508
